FAERS Safety Report 10870203 (Version 5)
Quarter: 2015Q2

REPORT INFORMATION
  Report Type: Spontaneous
  Country: CA (occurrence: CA)
  Receive Date: 20150226
  Receipt Date: 20150504
  Transmission Date: 20150821
  Serious: Yes (Other)
  Sender: FDA-Public Use
  Company Number: CA-ROCHE-1544815

PATIENT
  Age: 37 Year
  Sex: Female

DRUGS (21)
  1. HYDROXYDAUNORUBICIN [Suspect]
     Active Substance: DOXORUBICIN
     Indication: PRODUCT USED FOR UNKNOWN INDICATION
     Route: 042
     Dates: start: 201307, end: 201311
  2. ONCOVIN [Suspect]
     Active Substance: VINCRISTINE SULFATE
     Indication: PRODUCT USED FOR UNKNOWN INDICATION
     Route: 042
     Dates: start: 201307, end: 201311
  3. ONDANSETRON [Concomitant]
     Active Substance: ONDANSETRON
  4. LACTULOSE. [Concomitant]
     Active Substance: LACTULOSE
  5. GEMCITABINE [Suspect]
     Active Substance: GEMCITABINE\GEMCITABINE HYDROCHLORIDE
     Indication: PRODUCT USED FOR UNKNOWN INDICATION
     Route: 065
  6. CISPLATIN. [Suspect]
     Active Substance: CISPLATIN
     Indication: PRODUCT USED FOR UNKNOWN INDICATION
     Route: 065
  7. RITUXAN [Suspect]
     Active Substance: RITUXIMAB
     Indication: B-CELL LYMPHOMA
     Route: 042
     Dates: start: 201307, end: 201311
  8. RITUXAN [Suspect]
     Active Substance: RITUXIMAB
     Dosage: ON 26/MAR/2015, 620MG UNKNOWN FIRST RPAP DOSE
     Route: 042
     Dates: start: 20150326, end: 20150421
  9. DEXAMETHASONE. [Suspect]
     Active Substance: DEXAMETHASONE
     Indication: PRODUCT USED FOR UNKNOWN INDICATION
     Route: 065
  10. NAPROXEN. [Concomitant]
     Active Substance: NAPROXEN
  11. PULMICORT TURBUHALER [Concomitant]
     Active Substance: BUDESONIDE
  12. ACETAMINOPHEN. [Concomitant]
     Active Substance: ACETAMINOPHEN
     Indication: PREMEDICATION
     Dosage: 26/MAR/2015
     Route: 048
  13. CYCLOPHOSPHAMIDE. [Suspect]
     Active Substance: CYCLOPHOSPHAMIDE
     Indication: PRODUCT USED FOR UNKNOWN INDICATION
     Route: 042
     Dates: start: 201307, end: 201311
  14. PREDNISONE. [Suspect]
     Active Substance: PREDNISONE
     Indication: PRODUCT USED FOR UNKNOWN INDICATION
     Route: 042
     Dates: start: 201307, end: 201311
  15. MORPHINE SUSTAINED RELEASE [Concomitant]
     Route: 065
  16. MORPHINE SUSTAINED RELEASE [Concomitant]
     Route: 065
  17. DIPHENHYDRAMINE [Concomitant]
     Active Substance: DIPHENHYDRAMINE
     Indication: PREMEDICATION
     Dosage: 26/MAR/2015
     Route: 048
  18. TECTA [Concomitant]
     Active Substance: PANTOPRAZOLE MAGNESIUM
  19. LORAZEPAM. [Concomitant]
     Active Substance: LORAZEPAM
  20. STATEX (CANADA) [Concomitant]
  21. METHYLPREDNISOLONE. [Concomitant]
     Active Substance: METHYLPREDNISOLONE
     Indication: PREMEDICATION
     Dosage: 26/MAR/2015
     Route: 042

REACTIONS (10)
  - Nausea [Unknown]
  - Tooth disorder [Unknown]
  - Dyspepsia [Recovered/Resolved]
  - Fatigue [Unknown]
  - Non-Hodgkin^s lymphoma [Not Recovered/Not Resolved]
  - Stem cell transplant [Unknown]
  - Infusion related reaction [Unknown]
  - Amnesia [Unknown]
  - Malaise [Not Recovered/Not Resolved]
  - Pain [Unknown]

NARRATIVE: CASE EVENT DATE: 20150220
